FAERS Safety Report 5817314-0 (Version None)
Quarter: 2008Q3

REPORT INFORMATION
  Report Type: 
  Country: None (occurrence: None)
  Receive Date: 20080722
  Receipt Date: 20080715
  Transmission Date: 20090109
  Serious: Yes (Other)
  Sender: FDA-Public Use
  Company Number: B0529989A

PATIENT
  Age: 38 Year

DRUGS (4)
  1. ARIXTRA [Suspect]
     Indication: MYOCARDIAL INFARCTION
     Dosage: 2.5ML PER DAY
     Route: 065
  2. UROKINASE [Concomitant]
     Indication: MYOCARDIAL INFARCTION
     Route: 065
  3. HEPARIN [Concomitant]
     Route: 065
  4. ANTICOAGULANT [Concomitant]
     Route: 048

REACTIONS (2)
  - DRUG INEFFECTIVE [None]
  - INTRACARDIAC THROMBUS [None]
